FAERS Safety Report 4613157-4 (Version None)
Quarter: 2005Q1

REPORT INFORMATION
  Report Type: 
  Country: None (occurrence: None)
  Receive Date: 20050316
  Receipt Date: 20050228
  Transmission Date: 20050727
  Serious: Yes (Other)
  Sender: FDA-Public Use
  Company Number: USA050291881

PATIENT
  Age: 65 Year
  Sex: Female

DRUGS (3)
  1. FORTEO [Suspect]
     Indication: OSTEOPOROSIS
     Dates: start: 20050221
  2. ACTONEL [Concomitant]
  3. FOSAMAX [Concomitant]

REACTIONS (10)
  - ABDOMINAL DISCOMFORT [None]
  - BLOOD PRESSURE SYSTOLIC INCREASED [None]
  - CARDIAC FLUTTER [None]
  - CHEST PAIN [None]
  - DYSPNOEA [None]
  - FEAR [None]
  - NERVOUSNESS [None]
  - OESOPHAGEAL PAIN [None]
  - PHARMACEUTICAL PRODUCT COMPLAINT [None]
  - THROAT IRRITATION [None]
